FAERS Safety Report 9028927 (Version 1)
Quarter: 2013Q1

REPORT INFORMATION
  Report Type: Spontaneous
  Country: US (occurrence: US)
  Receive Date: 20130124
  Receipt Date: 20130124
  Transmission Date: 20140127
  Serious: No
  Sender: FDA-Public Use
  Company Number: US-PFIZER INC-2013028246

PATIENT
  Age: 68 Year
  Sex: Female
  Weight: 58.96 kg

DRUGS (1)
  1. HYDROCORTISONE [Suspect]

REACTIONS (1)
  - Drug hypersensitivity [Unknown]
